FAERS Safety Report 15347094 (Version 1)
Quarter: 2018Q3

REPORT INFORMATION
  Report Type: Spontaneous
  Country: SA (occurrence: SA)
  Receive Date: 20180904
  Receipt Date: 20180904
  Transmission Date: 20181010
  Serious: Yes (Hospitalization, Other)
  Sender: FDA-Public Use
  Company Number: SA-MACLEODS PHARMACEUTICALS US LTD-MAC2018016470

PATIENT

DRUGS (2)
  1. METFORMIN HYDROCHLORIDE 500MG TABLET [Suspect]
     Active Substance: METFORMIN HYDROCHLORIDE
     Indication: WEIGHT DECREASED
     Dosage: 60 TABLETS OF 500 MILLIGRAM
     Route: 048
  2. METFORMIN HYDROCHLORIDE 500MG TABLET [Suspect]
     Active Substance: METFORMIN HYDROCHLORIDE
     Indication: POLYCYSTIC OVARIES

REACTIONS (5)
  - Lactic acidosis [Recovered/Resolved]
  - Suicide attempt [Unknown]
  - Intentional overdose [Unknown]
  - Social problem [Unknown]
  - Hypoglycaemia [Recovered/Resolved]
